FAERS Safety Report 25017385 (Version 1)
Quarter: 2025Q1

REPORT INFORMATION
  Report Type: Other
  Country: RO (occurrence: RO)
  Receive Date: 20250227
  Receipt Date: 20250227
  Transmission Date: 20250408
  Serious: Yes (Other)
  Sender: MACLEODS
  Company Number: RO-MACLEODS PHARMACEUTICALS LTD-MAC2020028532

PATIENT

DRUGS (4)
  1. LEVOFLOXACIN [Suspect]
     Active Substance: LEVOFLOXACIN
     Indication: Sinusitis
     Route: 065
     Dates: start: 201905
  2. LEVOFLOXACIN [Suspect]
     Active Substance: LEVOFLOXACIN
     Indication: Rhinitis hypertrophic
  3. AMOXICILLIN [Suspect]
     Active Substance: AMOXICILLIN
     Indication: Rhinitis hypertrophic
     Dosage: 1.2 GRAM, BID, 2.4 G QD BOTH INTRAOPERATIVELY AND 7 DAYS POSTOPERATIVELY
     Route: 033
     Dates: start: 2019
  4. AMOXICILLIN [Suspect]
     Active Substance: AMOXICILLIN
     Indication: Sinusitis
     Route: 065

REACTIONS (5)
  - Sinusitis [Recovered/Resolved]
  - Sinonasal obstruction [Recovered/Resolved]
  - Rhinitis [Recovered/Resolved]
  - Chronic sinusitis [Recovered/Resolved]
  - Drug ineffective [Recovered/Resolved]

NARRATIVE: CASE EVENT DATE: 20190501
